FAERS Safety Report 19719126 (Version 2)
Quarter: 2021Q3

REPORT INFORMATION
  Report Type: Report from Study
  Country: CO (occurrence: CO)
  Receive Date: 20210818
  Receipt Date: 20210901
  Transmission Date: 20211014
  Serious: Yes (Hospitalization)
  Sender: FDA-Public Use
  Company Number: CO-BAYER-2021-193870

PATIENT
  Age: 61 Year
  Sex: Female

DRUGS (6)
  1. ATORVASTATINA [ATORVASTATIN] [Concomitant]
     Active Substance: ATORVASTATIN
  2. XARELTO [Concomitant]
     Active Substance: RIVAROXABAN
  3. ADEMPAS [Suspect]
     Active Substance: RIOCIGUAT
     Indication: PULMONARY HYPERTENSION
     Dosage: UNK
     Dates: start: 20201211
  4. ADEMPAS [Suspect]
     Active Substance: RIOCIGUAT
     Indication: PULMONARY HYPERTENSION
     Dosage: 2.5 MG
     Dates: start: 202108
  5. LEVOTIROXINA [LEVOTHYROXINE] [Concomitant]
     Active Substance: LEVOTHYROXINE
  6. LOSARTAN. [Concomitant]
     Active Substance: LOSARTAN
     Indication: HYPERTENSION

REACTIONS (7)
  - Dyspnoea [None]
  - Diarrhoea [Unknown]
  - Arrhythmia [Unknown]
  - Vomiting [None]
  - Dizziness [None]
  - Product use issue [Unknown]
  - Choking [None]

NARRATIVE: CASE EVENT DATE: 202106
